FAERS Safety Report 4964486-6 (Version None)
Quarter: 2006Q1

REPORT INFORMATION
  Report Type: 
  Country: None (occurrence: None)
  Receive Date: 20060331
  Receipt Date: 20060320
  Transmission Date: 20060701
  Serious: Yes (Hospitalization)
  Sender: FDA-Public Use
  Company Number: 223304

PATIENT
  Sex: Male

DRUGS (8)
  1. MABTHERA [Suspect]
     Indication: B-CELL LYMPHOMA
  2. CHLORAMINOPHENE             (CHLORAMBUCIL) [Concomitant]
  3. FIALURIDINE               (FIALURIDINE) [Concomitant]
  4. NEUPOGEN [Concomitant]
  5. CYCLOPHOSPHAMIDE [Concomitant]
  6. DOXORUBICIN HCL [Concomitant]
  7. VINCRISTINE [Concomitant]
  8. PREDNISONE TAB [Concomitant]

REACTIONS (2)
  - LUNG NEOPLASM MALIGNANT [None]
  - PANCYTOPENIA [None]
